FAERS Safety Report 24771595 (Version 2)
Quarter: 2025Q1

REPORT INFORMATION
  Report Type: Spontaneous
  Country: JP (occurrence: JP)
  Receive Date: 20241224
  Receipt Date: 20250128
  Transmission Date: 20250409
  Serious: Yes (Hospitalization, Other)
  Sender: ALEXION PHARMACEUTICALS
  Company Number: JP-ASTRAZENECA-240104860_013020_P_1

PATIENT
  Age: 78 Year
  Weight: 54 kg

DRUGS (22)
  1. OSIMERTINIB [Suspect]
     Active Substance: OSIMERTINIB
     Indication: Non-small cell lung cancer
     Dosage: 40 MILLIGRAM, QD
  2. OSIMERTINIB [Suspect]
     Active Substance: OSIMERTINIB
  3. WARFARIN [Concomitant]
     Active Substance: WARFARIN
  4. WARFARIN [Concomitant]
     Active Substance: WARFARIN
  5. WARFARIN [Concomitant]
     Active Substance: WARFARIN
  6. WARFARIN [Concomitant]
     Active Substance: WARFARIN
  7. ROSUVASTATIN CALCIUM [Concomitant]
     Active Substance: ROSUVASTATIN CALCIUM
  8. ROSUVASTATIN CALCIUM [Concomitant]
     Active Substance: ROSUVASTATIN CALCIUM
  9. LANSOPRAZOLE [Concomitant]
     Active Substance: LANSOPRAZOLE
  10. LANSOPRAZOLE [Concomitant]
     Active Substance: LANSOPRAZOLE
  11. BISOPROLOL FUMARATE [Concomitant]
     Active Substance: BISOPROLOL FUMARATE
  12. BISOPROLOL FUMARATE [Concomitant]
     Active Substance: BISOPROLOL FUMARATE
  13. TENELIGLIPTIN HYDROBROMIDE HYDRATE [Concomitant]
     Active Substance: TENELIGLIPTIN HYDROBROMIDE HYDRATE
  14. TENELIGLIPTIN HYDROBROMIDE HYDRATE [Concomitant]
     Active Substance: TENELIGLIPTIN HYDROBROMIDE HYDRATE
  15. ENALAPRIL MALEATE [Concomitant]
     Active Substance: ENALAPRIL MALEATE
  16. ENALAPRIL MALEATE [Concomitant]
     Active Substance: ENALAPRIL MALEATE
  17. FUROSEMIDE [Concomitant]
     Active Substance: FUROSEMIDE
  18. FUROSEMIDE [Concomitant]
     Active Substance: FUROSEMIDE
  19. NIFEDIPINE [Concomitant]
     Active Substance: NIFEDIPINE
  20. NIFEDIPINE [Concomitant]
     Active Substance: NIFEDIPINE
  21. VEKLURY [Concomitant]
     Active Substance: REMDESIVIR
  22. CEFTRIAXONE [Concomitant]
     Active Substance: CEFTRIAXONE

REACTIONS (2)
  - Myelosuppression [Recovered/Resolved]
  - COVID-19 [Unknown]
